FAERS Safety Report 12606629 (Version 1)
Quarter: 2016Q3

REPORT INFORMATION
  Report Type: Spontaneous
  Country: US (occurrence: US)
  Receive Date: 20160729
  Receipt Date: 20160729
  Transmission Date: 20161109
  Serious: No
  Sender: FDA-Public Use
  Company Number: US-009507513-1607USA001854

PATIENT
  Age: 58 Year
  Sex: Male
  Weight: 83 kg

DRUGS (1)
  1. VICTRELIS [Suspect]
     Active Substance: BOCEPREVIR
     Indication: HEPATITIS C
     Dosage: 800 MG, TID
     Route: 048
     Dates: start: 20111113

REACTIONS (4)
  - Dysgeusia [Unknown]
  - Agitation [Unknown]
  - Rash [Unknown]
  - Anaemia [Unknown]

NARRATIVE: CASE EVENT DATE: 2011
